FAERS Safety Report 6239281-0 (Version None)
Quarter: 2009Q2

REPORT INFORMATION
  Report Type: 
  Country: None (occurrence: None)
  Receive Date: 20090618
  Receipt Date: 20090611
  Transmission Date: 20091009
  Serious: Yes (Other)
  Sender: FDA-Public Use
  Company Number: 2009SP012902

PATIENT
  Age: 56 Year
  Sex: Male
  Weight: 62 kg

DRUGS (6)
  1. TEMODAL [Suspect]
     Indication: ASTROCYTOMA
     Dosage: 75 MG/M2;QD;PO
     Route: 048
     Dates: start: 20070319, end: 20070509
  2. BAKTAR [Concomitant]
  3. PREDNISOLONE [Concomitant]
  4. GASTER D [Concomitant]
  5. ALEVIATIN [Concomitant]
  6. PRIMPERAN [Concomitant]

REACTIONS (1)
  - DEEP VEIN THROMBOSIS [None]
